FAERS Safety Report 17924315 (Version 1)
Quarter: 2020Q2

REPORT INFORMATION
  Report Type: Report from Study
  Country: US (occurrence: US)
  Receive Date: 20200622
  Receipt Date: 20200622
  Transmission Date: 20200714
  Serious: Yes (Other)
  Sender: FDA-Public Use
  Company Number: US-SHIRE-US202019395

PATIENT
  Sex: Female

DRUGS (2)
  1. GAMMAGARD LIQUID [Suspect]
     Active Substance: HUMAN IMMUNOGLOBULIN G
     Indication: PRIMARY IMMUNODEFICIENCY SYNDROME
     Route: 042
  2. HUMAN NORMAL IMMUNOGLOBULIN; LIQUID 20 [Suspect]
     Active Substance: HUMAN IMMUNOGLOBULIN G
     Indication: PRIMARY IMMUNODEFICIENCY SYNDROME
     Route: 065

REACTIONS (10)
  - Headache [Unknown]
  - Interstitial lung disease [Unknown]
  - Dyspnoea [Unknown]
  - Eye discharge [Unknown]
  - Meningitis aseptic [Unknown]
  - Fatigue [Unknown]
  - Sinus disorder [Unknown]
  - Ear infection [Unknown]
  - Lymphadenopathy [Unknown]
  - Asthenia [Unknown]
